FAERS Safety Report 15124255 (Version 2)
Quarter: 2018Q3

REPORT INFORMATION
  Report Type: Report from Study
  Country: None (occurrence: IT)
  Receive Date: 20180710
  Receipt Date: 20180711
  Transmission Date: 20181010
  Serious: Yes (Hospitalization, Other)
  Sender: FDA-Public Use
  Company Number: IT-ABBVIE-18S-083-2411232-00

PATIENT
  Age: 76 Year
  Sex: Female

DRUGS (1)
  1. DUODOPA [Suspect]
     Active Substance: CARBIDOPA\LEVODOPA
     Indication: PARKINSON^S DISEASE
     Dosage: MD 2+3?CR 3?ED 3
     Route: 050
     Dates: start: 20171104

REACTIONS (4)
  - Jaw fracture [Unknown]
  - Fall [Unknown]
  - Weight decreased [Unknown]
  - Malnutrition [Unknown]

NARRATIVE: CASE EVENT DATE: 20180421
